FAERS Safety Report 4505621-3 (Version None)
Quarter: 2004Q4

REPORT INFORMATION
  Report Type: 
  Country: None (occurrence: None)
  Receive Date: 20041119
  Receipt Date: 20040503
  Transmission Date: 20050328
  Serious: Yes (Disabling, Other)
  Sender: FDA-Public Use
  Company Number: ES-MERCK-0405ESP00009

PATIENT
  Age: 56 Year
  Sex: Female

DRUGS (5)
  1. FOSAMAX [Suspect]
     Indication: OSTEOPOROSIS
     Route: 048
     Dates: start: 20040301, end: 20040501
  2. CALCIUM CARBONATE AND CHOLECALCIFEROL [Concomitant]
     Route: 048
  3. GLUCOSAMINE SULFATE [Concomitant]
     Route: 048
  4. OMEPRAZOLE [Concomitant]
     Indication: PROPHYLAXIS
     Route: 048
  5. HOMEOPATHIC MEDICATIONS (UNSPECIFIED) [Concomitant]
     Route: 065

REACTIONS (1)
  - VITREOUS DETACHMENT [None]
